FAERS Safety Report 8086717-9 (Version None)
Quarter: 2012Q1

REPORT INFORMATION
  Report Type: 
  Country: None (occurrence: None)
  Receive Date: 20120128
  Receipt Date: 20110608
  Transmission Date: 20120608
  Serious: No
  Sender: FDA-Public Use
  Company Number: US-ABBOTT-11P-163-0731883-00

PATIENT
  Sex: Male
  Weight: 90.8 kg

DRUGS (5)
  1. FOLIC ACID [Concomitant]
     Indication: PRODUCT USED FOR UNKNOWN INDICATION
  2. HUMIRA [Suspect]
     Indication: RHEUMATOID ARTHRITIS
     Route: 058
     Dates: start: 20110301
  3. NORCO [Concomitant]
     Indication: RESTLESS LEGS SYNDROME
  4. NORCO [Concomitant]
     Indication: ARTHRALGIA
  5. METHOTREXATE [Suspect]
     Indication: RHEUMATOID ARTHRITIS
     Dates: end: 20110501

REACTIONS (6)
  - FATIGUE [None]
  - DYSPNOEA [None]
  - SINUSITIS [None]
  - BREAKTHROUGH PAIN [None]
  - OEDEMA PERIPHERAL [None]
  - GAIT DISTURBANCE [None]
